FAERS Safety Report 10952723 (Version 1)
Quarter: 2015Q1

REPORT INFORMATION
  Report Type: Spontaneous
  Country: US (occurrence: None)
  Receive Date: 20150324
  Receipt Date: 20150324
  Transmission Date: 20150721
  Serious: Yes (Life-Threatening, Disabling)
  Sender: FDA-Public Use
  Company Number: None

PATIENT
  Age: 25 Year
  Sex: Male

DRUGS (3)
  1. ACCUTANE [Suspect]
     Active Substance: ISOTRETINOIN
     Indication: ACNE
     Dates: start: 20150301, end: 20150323
  2. AKNEMYSIN [Concomitant]
  3. DESQUAM-X WASH [Concomitant]
     Active Substance: BENZOYL PEROXIDE

REACTIONS (12)
  - Impaired work ability [None]
  - Product quality issue [None]
  - Migraine [None]
  - Depression [None]
  - Facial pain [None]
  - Burning sensation [None]
  - Suicidal ideation [None]
  - Activities of daily living impaired [None]
  - Pain [None]
  - Irritability [None]
  - Angiopathy [None]
  - Discomfort [None]

NARRATIVE: CASE EVENT DATE: 20050101
